FAERS Safety Report 10187006 (Version 1)
Quarter: 2014Q2

REPORT INFORMATION
  Report Type: Spontaneous
  Country: AU (occurrence: AU)
  Receive Date: 20140522
  Receipt Date: 20140522
  Transmission Date: 20141212
  Serious: Yes (Hospitalization)
  Sender: FDA-Public Use
  Company Number: AU-009507513-1405AUS006764

PATIENT
  Age: 43 Year
  Sex: Male

DRUGS (5)
  1. ISENTRESS [Suspect]
     Dosage: 800 MG, UNK
     Route: 048
     Dates: start: 20101223
  2. EMTRICITABINE (+) TENOFOVIR DISOPROXIL FUMARATE [Suspect]
     Dosage: 1 DOSE UNSPEC, DAILY
     Route: 048
     Dates: start: 20090520
  3. ALPRAZOLAM [Concomitant]
     Dosage: UNK
  4. LISINOPRIL [Concomitant]
     Dosage: UNK
  5. ESCITALOPRAM [Concomitant]
     Dosage: UNK

REACTIONS (1)
  - Cellulitis [Recovered/Resolved]
